FAERS Safety Report 5319467-X (Version None)
Quarter: 2007Q2

REPORT INFORMATION
  Report Type: 
  Country: None (occurrence: None)
  Receive Date: 20070508
  Receipt Date: 20070426
  Transmission Date: 20071010
  Serious: Yes (Other)
  Sender: FDA-Public Use
  Company Number: JP-PFIZER INC-2007033858

PATIENT
  Age: 52 Year
  Sex: Female

DRUGS (3)
  1. SOLU-MEDROL [Suspect]
     Indication: STEVENS-JOHNSON SYNDROME
  2. PREDNISOLONE [Concomitant]
  3. URSODIOL [Concomitant]

REACTIONS (2)
  - CHOLANGITIS [None]
  - CYTOMEGALOVIRUS ENTEROCOLITIS [None]
